FAERS Safety Report 11919762 (Version 1)
Quarter: 2016Q1

REPORT INFORMATION
  Report Type: Spontaneous
  Country: GB (occurrence: GB)
  Receive Date: 20160115
  Receipt Date: 20160115
  Transmission Date: 20160526
  Serious: Yes (Other)
  Sender: FDA-Public Use
  Company Number: GB-TAKEDA-2016MPI000109

PATIENT
  Age: 75 Year
  Sex: Male

DRUGS (2)
  1. ZOMETA [Suspect]
     Active Substance: ZOLEDRONIC ACID
     Indication: PRODUCT USED FOR UNKNOWN INDICATION
     Dosage: UNK
     Route: 065
  2. VELCADE [Suspect]
     Active Substance: BORTEZOMIB
     Indication: PRODUCT USED FOR UNKNOWN INDICATION
     Dosage: UNK
     Route: 058

REACTIONS (9)
  - Fatigue [Unknown]
  - Eye discharge [Recovering/Resolving]
  - Insomnia [Unknown]
  - Sciatica [Unknown]
  - Eye pain [Recovering/Resolving]
  - Back pain [Unknown]
  - Neuropathy peripheral [Recovering/Resolving]
  - Pain in extremity [Unknown]
  - Dysgeusia [Unknown]
